FAERS Safety Report 9024926 (Version 1)
Quarter: 2012Q4

REPORT INFORMATION
  Report Type: Spontaneous
  Country: US (occurrence: None)
  Receive Date: 20121231
  Receipt Date: 20121231
  Transmission Date: 20130627
  Serious: No
  Sender: FDA-Public Use
  Company Number: SPI201200382

PATIENT
  Age: 24 Year
  Sex: Female

DRUGS (1)
  1. AMITIZA [Suspect]
     Indication: CHRONIC IDIOPATHIC CONSTIPATION
     Dosage: 24 MCG, BID, ORAL
     Route: 048

REACTIONS (3)
  - Anaphylactoid reaction [None]
  - Dyspnoea [None]
  - Lacrimation increased [None]
